FAERS Safety Report 22280056 (Version 3)
Quarter: 2024Q3

REPORT INFORMATION
  Report Type: Report from Study
  Country: CA (occurrence: CA)
  Receive Date: 20230503
  Receipt Date: 20240808
  Transmission Date: 20241016
  Serious: Yes (Life-Threatening, Hospitalization)
  Sender: BIOGEN
  Company Number: CA-BIOGEN-2023BI01202202

PATIENT
  Age: 42 Year
  Sex: Female

DRUGS (1)
  1. DALFAMPRIDINE [Suspect]
     Active Substance: DALFAMPRIDINE
     Indication: Multiple sclerosis
     Route: 050
     Dates: start: 20130812

REACTIONS (14)
  - Ankle fracture [Unknown]
  - Suicidal ideation [Unknown]
  - Muscular weakness [Unknown]
  - Dysstasia [Not Recovered/Not Resolved]
  - Fall [Recovered/Resolved]
  - Cognitive disorder [Unknown]
  - Astigmatism [Unknown]
  - Disorientation [Unknown]
  - Disturbance in attention [Unknown]
  - Weight increased [Not Recovered/Not Resolved]
  - Underdose [Unknown]
  - Head injury [Not Recovered/Not Resolved]
  - Anxiety [Unknown]
  - Balance disorder [Unknown]

NARRATIVE: CASE EVENT DATE: 20130812
